FAERS Safety Report 11786545 (Version 2)
Quarter: 2016Q4

REPORT INFORMATION
  Report Type: Spontaneous
  Country: US (occurrence: US)
  Receive Date: 20151130
  Receipt Date: 20161017
  Transmission Date: 20170206
  Serious: No
  Sender: FDA-Public Use
  Company Number: US-BIOCOMPATIBLES UK LTD-BTG00478

PATIENT

DRUGS (1)
  1. CROFAB [Suspect]
     Active Substance: CROTALIDAE POLYVALENT IMMUNE FAB (OVINE)
     Indication: SNAKE BITE
     Dosage: 4 VIALS
     Dates: start: 20150810, end: 20150810

REACTIONS (12)
  - Feeling abnormal [Unknown]
  - Tenderness [Unknown]
  - Hypersensitivity [Unknown]
  - Urinary incontinence [Unknown]
  - Fibrin D dimer increased [Unknown]
  - Loss of consciousness [Unknown]
  - Pain [Unknown]
  - Gait disturbance [Unknown]
  - Muscle contractions involuntary [Unknown]
  - Hyperhidrosis [Unknown]
  - Tachycardia [Unknown]
  - Swelling [Unknown]

NARRATIVE: CASE EVENT DATE: 20150810
